FAERS Safety Report 9733406 (Version 2)
Quarter: 2013Q4

REPORT INFORMATION
  Report Type: Report from Study
  Country: FR (occurrence: FR)
  Receive Date: 20131205
  Receipt Date: 20131227
  Transmission Date: 20140711
  Serious: Yes (Other)
  Sender: FDA-Public Use
  Company Number: FR-SA-2013SA126195

PATIENT
  Age: 62 Year
  Sex: Female

DRUGS (8)
  1. CAMPATH [Suspect]
     Indication: CHRONIC LYMPHOCYTIC LEUKAEMIA
     Dosage: CAMPATH WAS TAKEN INTRAVENOUSLY AND THEN THROUGH SUB-CUTANEOUS ROUTE.DOSE REPORTED WAS 3 X30 MG/D.
     Route: 065
     Dates: start: 20130420, end: 20130515
  2. CAMPATH [Suspect]
     Indication: CHRONIC LYMPHOCYTIC LEUKAEMIA
     Dosage: CAMPATH WAS TAKEN INTRAVENOUSLY AND THEN THROUGH SUB-CUTANEOUS ROUTE.DOSE REPORTED WAS 3 X30 MG/D.
     Route: 065
     Dates: start: 20130420, end: 20130515
  3. CAMPATH [Suspect]
     Indication: CHRONIC LYMPHOCYTIC LEUKAEMIA
     Dosage: CAMPATH WAS TAKEN INTRAVENOUSLY AND THEN THROUGH SUB-CUTANEOUS ROUTE.DOSE REPORTED WAS 3 X30 MG/D.
     Route: 065
     Dates: start: 20130522, end: 20130724
  4. CAMPATH [Suspect]
     Indication: CHRONIC LYMPHOCYTIC LEUKAEMIA
     Dosage: CAMPATH WAS TAKEN INTRAVENOUSLY AND THEN THROUGH SUB-CUTANEOUS ROUTE.DOSE REPORTED WAS 3 X30 MG/D.
     Route: 065
     Dates: start: 20130522, end: 20130724
  5. ZELITREX [Concomitant]
     Indication: OPPORTUNISTIC INFECTION PROPHYLAXIS
     Dates: start: 20130423, end: 20130722
  6. BACTRIM FORTE [Concomitant]
     Indication: OPPORTUNISTIC INFECTION PROPHYLAXIS
     Dates: start: 20130423, end: 20130722
  7. DEXAMETHASONE [Concomitant]
     Dosage: FROM MONDAY TO THURSDAY (ACC TO PROTOCOL)
     Dates: start: 20130423, end: 20130722
  8. GRANOCYTE [Concomitant]
     Indication: NEUTROPENIA
     Dates: start: 20130513, end: 20130722

REACTIONS (2)
  - Kaposi^s sarcoma [Not Recovered/Not Resolved]
  - Cytomegalovirus infection [Recovered/Resolved]
